FAERS Safety Report 6633336-4 (Version None)
Quarter: 2010Q1

REPORT INFORMATION
  Report Type: 
  Country: None (occurrence: None)
  Receive Date: 20100312
  Receipt Date: 20100305
  Transmission Date: 20100710
  Serious: Yes (Other)
  Sender: FDA-Public Use
  Company Number: US-JNJCH-2010005997

PATIENT
  Age: 83 Year
  Sex: Male
  Weight: 68 kg

DRUGS (7)
  1. ROLAIDS [Suspect]
     Indication: DYSPEPSIA
     Dosage: TEXT:THREE TO FOUR TABLETS TWICE DAILY
     Route: 048
  2. LISINOPRIL [Concomitant]
     Indication: BLOOD PRESSURE
     Dosage: TEXT:UNSPECIFIED
     Route: 065
  3. ALL OTHER THERAPEUTIC PRODUCTS [Concomitant]
     Indication: MENTAL DISORDER
     Dosage: TEXT:UNSPECIFIED
     Route: 065
  4. FINASTERIDE [Concomitant]
     Indication: PROSTATIC DISORDER
     Dosage: TEXT:UNSPECIFIED
     Route: 065
  5. DRUG, UNSPECIFIED [Concomitant]
     Indication: PROSTATIC DISORDER
     Dosage: TEXT:UNSPECIFIED
     Route: 065
  6. PLAVIX [Concomitant]
     Indication: ANTICOAGULANT THERAPY
     Dosage: TEXT:UNSPECIFIED
     Route: 065
  7. XANAX [Concomitant]
     Indication: ANTIDEPRESSANT THERAPY
     Dosage: TEXT:UNSPECIFIED
     Route: 065

REACTIONS (2)
  - NAUSEA [None]
  - WEIGHT DECREASED [None]
